FAERS Safety Report 8896858 (Version 1)
Quarter: 2012Q4

REPORT INFORMATION
  Report Type: Spontaneous
  Country: US (occurrence: None)
  Receive Date: 20121102
  Receipt Date: 20121102
  Transmission Date: 20130627
  Serious: Yes (Other)
  Sender: FDA-Public Use
  Company Number: DSA_60373_2012

PATIENT
  Age: 20 Month
  Sex: Female

DRUGS (1)
  1. METRONIDAZOLE [Suspect]
     Dosage: 120 mg/kg, daily; not as prescribed

REACTIONS (7)
  - Neuropathy peripheral [None]
  - Nausea [None]
  - Vomiting [None]
  - Gait disturbance [None]
  - Fall [None]
  - Head injury [None]
  - Gait disturbance [None]
